FAERS Safety Report 25713112 (Version 3)
Quarter: 2025Q4

REPORT INFORMATION
  Report Type: Report from Study
  Country: EU (occurrence: EU)
  Receive Date: 20250822
  Receipt Date: 20251130
  Transmission Date: 20260117
  Serious: Yes (Hospitalization, Other)
  Sender: ABBVIE
  Company Number: EU-ABBVIE-6425111

PATIENT
  Age: 22 Year
  Sex: Male
  Weight: 80 kg

DRUGS (7)
  1. SKYRIZI [Suspect]
     Active Substance: RISANKIZUMAB-RZAA
     Indication: Psoriasis
     Route: 058
     Dates: start: 20240112
  2. SKYRIZI [Suspect]
     Active Substance: RISANKIZUMAB-RZAA
     Route: 058
  3. OXYCODONE HYDROCHLORIDE [Concomitant]
     Active Substance: OXYCODONE HYDROCHLORIDE
     Indication: Pain
     Dosage: 1 PC PER DOSE?MAXIMUM PER 24 HOURS: 3 PCS
     Route: 048
     Dates: start: 20240614
  4. DIPYRONE [Concomitant]
     Active Substance: DIPYRONE
     Indication: Product used for unknown indication
     Dosage: 2-2-2-2 PCS
     Route: 048
     Dates: start: 20240614
  5. ENOXAPARIN SODIUM [Concomitant]
     Active Substance: ENOXAPARIN SODIUM
     Indication: Product used for unknown indication
     Dosage: 4,000 1U?1 PC AT 6:00 PM
     Route: 058
     Dates: start: 20240614
  6. POLYETHYLENE GLYCOLS [Concomitant]
     Active Substance: POLYETHYLENE GLYCOLS
     Indication: Product used for unknown indication
     Dosage: BALANCE PUL ?1-0-0 PCS
     Route: 048
     Dates: start: 20240615
  7. ZOPICLONE [Concomitant]
     Active Substance: ZOPICLONE
     Indication: Sleep disorder
     Dosage: EMERGENCY MEDICATION?1 PC PER DOSE?MAXIMUM DOSE PER 24 HOURS: 1 PC
     Route: 048
     Dates: start: 20240617

REACTIONS (7)
  - Joint stabilisation [Recovered/Resolved with Sequelae]
  - Folliculitis [Not Recovered/Not Resolved]
  - Bankart lesion [Unknown]
  - Gastrooesophageal reflux disease [Unknown]
  - Joint instability [Unknown]
  - Discomfort [Unknown]
  - Psoriasis [Unknown]

NARRATIVE: CASE EVENT DATE: 20240209
